FAERS Safety Report 14728125 (Version 3)
Quarter: 2018Q3

REPORT INFORMATION
  Report Type: Report from Study
  Country: US (occurrence: US)
  Receive Date: 20180406
  Receipt Date: 20180904
  Transmission Date: 20181010
  Serious: Yes (Hospitalization)
  Sender: FDA-Public Use
  Company Number: US-JNJFOC-20180403641

PATIENT
  Age: 29 Year
  Sex: Male

DRUGS (1)
  1. IMBRUVICA [Suspect]
     Active Substance: IBRUTINIB
     Indication: HODGKIN^S DISEASE
     Route: 048

REACTIONS (7)
  - Skin ulcer [Recovering/Resolving]
  - Chest pain [Unknown]
  - Anaemia [Unknown]
  - Off label use [Unknown]
  - Product use in unapproved indication [Unknown]
  - Muscle tightness [Unknown]
  - Dry mouth [Unknown]

NARRATIVE: CASE EVENT DATE: 20180323
